FAERS Safety Report 21438359 (Version 1)
Quarter: 2022Q4

REPORT INFORMATION
  Report Type: Spontaneous
  Country: BR (occurrence: BR)
  Receive Date: 20221011
  Receipt Date: 20221011
  Transmission Date: 20230112
  Serious: Yes (Hospitalization, Other)
  Sender: FDA-Public Use
  Company Number: BR-CHEPLA-2022008703

PATIENT
  Sex: Female
  Weight: 70 kg

DRUGS (1)
  1. CLONAZEPAM [Suspect]
     Active Substance: CLONAZEPAM
     Indication: Restless legs syndrome
     Dosage: VARIABLE DOSE, DAILY
     Route: 048
     Dates: start: 1992

REACTIONS (14)
  - Dependence [Not Recovered/Not Resolved]
  - Varicose vein [Recovered/Resolved]
  - Nephrolithiasis [Recovered/Resolved]
  - Wrong technique in product usage process [Unknown]
  - Insomnia [Recovered/Resolved]
  - Intentional product misuse [Not Recovered/Not Resolved]
  - Labyrinthitis [Not Recovered/Not Resolved]
  - Tinnitus [Not Recovered/Not Resolved]
  - Sciatica [Not Recovered/Not Resolved]
  - Abdominal pain upper [Not Recovered/Not Resolved]
  - Hypertension [Not Recovered/Not Resolved]
  - Product taste abnormal [Not Recovered/Not Resolved]
  - Weaning failure [Not Recovered/Not Resolved]
  - Product use in unapproved indication [Not Recovered/Not Resolved]

NARRATIVE: CASE EVENT DATE: 19920101
